FAERS Safety Report 8169772-7 (Version None)
Quarter: 2012Q1

REPORT INFORMATION
  Report Type: 
  Country: None (occurrence: None)
  Receive Date: 20120228
  Receipt Date: 20120216
  Transmission Date: 20120608
  Serious: Yes (Hospitalization)
  Sender: FDA-Public Use
  Company Number: IT-BRISTOL-MYERS SQUIBB COMPANY-16404584

PATIENT
  Age: 74 Year
  Sex: Male

DRUGS (8)
  1. ALLOPURINOL [Concomitant]
     Dosage: TABS
  2. VASEXTEN [Concomitant]
     Dosage: CAPS
  3. TAMSULOSIN HYDROCHLORIDE [Concomitant]
  4. WARFARIN SODIUM [Suspect]
     Indication: ATRIAL FIBRILLATION
     Dates: start: 20110601
  5. AMIODARONE HCL [Concomitant]
  6. TELMISARTAN [Concomitant]
  7. BISOPROLOL FUMARATE [Concomitant]
  8. TORSEMIDE [Concomitant]

REACTIONS (2)
  - GANGRENE [None]
  - CYANOSIS [None]
